FAERS Safety Report 7617237-0 (Version None)
Quarter: 2011Q3

REPORT INFORMATION
  Report Type: 
  Country: None (occurrence: None)
  Receive Date: 20110718
  Receipt Date: 20110707
  Transmission Date: 20111222
  Serious: Yes (Other)
  Sender: FDA-Public Use
  Company Number: FR-JNJFOC-20100307727

PATIENT
  Age: 70 Year
  Sex: Male

DRUGS (3)
  1. TADENAN [Concomitant]
     Route: 065
  2. ACETAMINOPHEN [Concomitant]
     Route: 065
  3. LEVOFLOXACIN [Suspect]
     Indication: PROSTATITIS
     Route: 048
     Dates: start: 20090611, end: 20090624

REACTIONS (2)
  - TENDONITIS [None]
  - NERVOUS SYSTEM DISORDER [None]
